FAERS Safety Report 6537241-3 (Version None)
Quarter: 2010Q1

REPORT INFORMATION
  Report Type: 
  Country: None (occurrence: None)
  Receive Date: 20100114
  Receipt Date: 20100108
  Transmission Date: 20100710
  Serious: Yes (Death)
  Sender: FDA-Public Use
  Company Number: US-ROCHE-678717

PATIENT
  Sex: Male
  Weight: 83.9 kg

DRUGS (1)
  1. CAPECITABINE [Suspect]
     Indication: COLORECTAL CANCER
     Dosage: 3 DOSE FORM OF 500 MG (1500 MG) TWICE DAILY AND 3 DOSE FORM OF 150 MG (450 MG) TWICE DAILY
     Route: 048
     Dates: start: 20091116, end: 20091226

REACTIONS (1)
  - DEATH [None]
